FAERS Safety Report 4755448-2 (Version None)
Quarter: 2005Q3

REPORT INFORMATION
  Report Type: 
  Country: None (occurrence: None)
  Receive Date: 20050829
  Receipt Date: 20050817
  Transmission Date: 20060218
  Serious: Yes (Other)
  Sender: FDA-Public Use
  Company Number: 2005104427

PATIENT
  Age: 44 Year
  Sex: Male

DRUGS (1)
  1. COOL MINT LISTERINE (MENTHOL, METHYL SALICYLATE, EUCALYPTOL, THYMOL) [Suspect]
     Indication: DENTAL DISORDER PROPHYLAXIS
     Dosage: BID, ORAL TOPICAL
     Route: 061
     Dates: start: 20030101, end: 20050613

REACTIONS (10)
  - AURICULAR SWELLING [None]
  - BURNING SENSATION [None]
  - GLOSSITIS [None]
  - INFLAMMATION [None]
  - NASOPHARYNGEAL DISORDER [None]
  - OESOPHAGEAL PAIN [None]
  - PHARYNGEAL ERYTHEMA [None]
  - THROAT IRRITATION [None]
  - TONSILLAR DISORDER [None]
  - TONSILLITIS [None]
